FAERS Safety Report 8451203-0 (Version None)
Quarter: 2012Q2

REPORT INFORMATION
  Report Type: 
  Country: None (occurrence: None)
  Receive Date: 20120620
  Receipt Date: 20120309
  Transmission Date: 20120825
  Serious: No
  Sender: FDA-Public Use
  Company Number: US-VERTEX PHARMACEUTICALS INC.-AE-2011-004769

PATIENT
  Sex: Female
  Weight: 108.96 kg

DRUGS (10)
  1. ALKA SELTZER [Concomitant]
     Indication: DYSPEPSIA
     Route: 048
  2. INCIVEK [Suspect]
     Indication: HEPATITIS C
     Route: 048
     Dates: start: 20111208
  3. TRAZODONE HCL [Concomitant]
     Route: 048
  4. REGLAN [Concomitant]
     Indication: DYSPEPSIA
     Route: 048
  5. METOPROLOL TARTRATE [Concomitant]
     Indication: HYPERTENSION
     Route: 048
  6. LISINOPRIL AND HYDROCHLOROTHIAZIDE [Concomitant]
     Indication: HYPERTENSION
     Route: 048
  7. NEXIUM [Concomitant]
     Indication: DYSPEPSIA
     Route: 048
  8. PEGASYS [Concomitant]
     Indication: HEPATITIS C
     Route: 058
     Dates: start: 20111208
  9. RIBAVIRIN [Concomitant]
     Indication: HEPATITIS C
     Route: 048
     Dates: start: 20111208
  10. APRAZOLAM [Concomitant]
     Indication: ANXIETY
     Route: 048

REACTIONS (5)
  - GINGIVAL PAIN [None]
  - DIZZINESS [None]
  - CRYING [None]
  - RETCHING [None]
  - HEADACHE [None]
